FAERS Safety Report 21680801 (Version 2)
Quarter: 2023Q1

REPORT INFORMATION
  Report Type: Report from Study
  Country: US (occurrence: US)
  Receive Date: 20221205
  Receipt Date: 20230215
  Transmission Date: 20230417
  Serious: Yes (Other)
  Sender: FDA-Public Use
  Company Number: US-ABBVIE-4201156

PATIENT
  Age: 65 Year
  Sex: Female
  Weight: 80 kg

DRUGS (1)
  1. HUMIRA [Suspect]
     Active Substance: ADALIMUMAB
     Indication: Rheumatoid arthritis
     Dosage: CITRATE FREE
     Route: 058

REACTIONS (10)
  - Cataract [Unknown]
  - Muscle spasms [Not Recovered/Not Resolved]
  - Device breakage [Recovered/Resolved]
  - Injection site bruising [Recovered/Resolved]
  - Dry eye [Not Recovered/Not Resolved]
  - Weight decreased [Not Recovered/Not Resolved]
  - Arthralgia [Not Recovered/Not Resolved]
  - Wrist fracture [Unknown]
  - Arthralgia [Not Recovered/Not Resolved]
  - Spinal support [Recovered/Resolved]

NARRATIVE: CASE EVENT DATE: 20200301
